FAERS Safety Report 4731428-8 (Version None)
Quarter: 2005Q3

REPORT INFORMATION
  Report Type: 
  Country: None (occurrence: None)
  Receive Date: 20050802
  Receipt Date: 20050726
  Transmission Date: 20060218
  Serious: Yes (Other)
  Sender: FDA-Public Use
  Company Number: PHFR2005GB02592

PATIENT
  Sex: Female

DRUGS (1)
  1. ELIDEL [Suspect]

REACTIONS (1)
  - SARCOIDOSIS [None]
